FAERS Safety Report 13134955 (Version 2)
Quarter: 2017Q1

REPORT INFORMATION
  Report Type: Spontaneous
  Country: US (occurrence: US)
  Receive Date: 20170120
  Receipt Date: 20170303
  Transmission Date: 20170428
  Serious: Yes (Other)
  Sender: FDA-Public Use
  Company Number: US-BAYER-2017-011824

PATIENT
  Age: 15 Year
  Weight: 55 kg

DRUGS (2)
  1. GADAVIST [Suspect]
     Active Substance: GADOBUTROL
     Dosage: UNK ML, UNK
  2. GADAVIST [Suspect]
     Active Substance: GADOBUTROL
     Dosage: 5.5 ML, UNK
     Dates: start: 20170114

REACTIONS (7)
  - Vomiting [None]
  - Dysphonia [None]
  - Nausea [None]
  - Anxiety [None]
  - Burning sensation [None]
  - Swelling face [None]
  - Respiratory distress [None]

NARRATIVE: CASE EVENT DATE: 20161228
